FAERS Safety Report 21102599 (Version 2)
Quarter: 2022Q3

REPORT INFORMATION
  Report Type: Report from Study
  Country: ES (occurrence: ES)
  Receive Date: 20220719
  Receipt Date: 20220725
  Transmission Date: 20221027
  Serious: Yes (Death, Other)
  Sender: FDA-Public Use
  Company Number: ES-ABBVIE-22K-144-4472989-00

PATIENT
  Age: 75 Year
  Sex: Male

DRUGS (3)
  1. CARBIDOPA\LEVODOPA [Suspect]
     Active Substance: CARBIDOPA\LEVODOPA
     Indication: Parkinson^s disease
     Dosage: MORNING DOSE 18 ML, CONTINUOUS DOSE 2.8 ML/H
     Route: 050
     Dates: start: 20210624
  2. CARBIDOPA\LEVODOPA [Suspect]
     Active Substance: CARBIDOPA\LEVODOPA
  3. QUETIAPINE [Concomitant]
     Active Substance: QUETIAPINE
     Indication: Product used for unknown indication
     Dosage: AS REQUIRED
     Route: 048
     Dates: start: 20220715

REACTIONS (2)
  - Pancreatic carcinoma metastatic [Fatal]
  - Unevaluable event [Unknown]

NARRATIVE: CASE EVENT DATE: 20220708
